FAERS Safety Report 17390110 (Version 1)
Quarter: 2020Q1

REPORT INFORMATION
  Report Type: Spontaneous
  Country: JP (occurrence: JP)
  Receive Date: 20200205
  Receipt Date: 20200205
  Transmission Date: 20200409
  Serious: Yes (Death, Hospitalization, Other)
  Sender: FDA-Public Use
  Company Number: JP-GLAXOSMITHKLINE-JP2019JPN159921

PATIENT

DRUGS (2)
  1. IGURATIMOD [Suspect]
     Active Substance: IGURATIMOD
     Indication: RHEUMATOID ARTHRITIS
     Dosage: UNK
     Route: 048
  2. VALTREX [Suspect]
     Active Substance: VALACYCLOVIR HYDROCHLORIDE
     Indication: HERPES ZOSTER
     Dosage: UNK
     Route: 048

REACTIONS (14)
  - Fournier^s gangrene [Fatal]
  - Skin exfoliation [Unknown]
  - Muscle necrosis [Unknown]
  - Multiple organ dysfunction syndrome [Fatal]
  - Acute kidney injury [Fatal]
  - Disseminated intravascular coagulation [Fatal]
  - Gastrointestinal necrosis [Unknown]
  - Muscle enzyme increased [Unknown]
  - Skin necrosis [Fatal]
  - Sepsis [Fatal]
  - Dehydration [Unknown]
  - Urine output decreased [Unknown]
  - Pyrexia [Unknown]
  - Pain [Unknown]
